FAERS Safety Report 7800143-6 (Version None)
Quarter: 2011Q4

REPORT INFORMATION
  Report Type: 
  Country: None (occurrence: None)
  Receive Date: 20111006
  Receipt Date: 20110929
  Transmission Date: 20120403
  Serious: Yes (Hospitalization)
  Sender: FDA-Public Use
  Company Number: FR-B.I. PHARMACEUTICALS,INC./RIDGEFIELD-2011-DE-05494GD

PATIENT

DRUGS (3)
  1. CATAPRES [Suspect]
     Indication: MATERNAL EXPOSURE DURING PREGNANCY
     Route: 064
  2. CHIROCAINE [Suspect]
     Indication: MATERNAL EXPOSURE DURING PREGNANCY
     Route: 064
  3. SUFENTANIL CITRATE [Suspect]
     Indication: MATERNAL EXPOSURE DURING PREGNANCY
     Route: 064

REACTIONS (1)
  - RESPIRATORY FAILURE [None]
